FAERS Safety Report 23418594 (Version 1)
Quarter: 2024Q1

REPORT INFORMATION
  Report Type: Other
  Country: US (occurrence: US)
  Receive Date: 20240118
  Receipt Date: 20240118
  Transmission Date: 20240410
  Serious: No
  Sender: FDA-Public Use
  Company Number: US-UROVANT SCIENCES GMBH-202310-URV-001944

PATIENT
  Sex: Male

DRUGS (3)
  1. GEMTESA [Suspect]
     Active Substance: VIBEGRON
     Indication: Hypertonic bladder
     Dosage: 75 MG, PRN
     Route: 048
     Dates: start: 202306, end: 202306
  2. GEMTESA [Suspect]
     Active Substance: VIBEGRON
     Dosage: 75 MG, PRN
     Route: 048
     Dates: start: 202306, end: 202306
  3. GEMTESA [Suspect]
     Active Substance: VIBEGRON
     Dosage: 75 MG, PRN
     Route: 048
     Dates: start: 202310, end: 202310

REACTIONS (1)
  - Inappropriate schedule of product administration [Unknown]
